FAERS Safety Report 22522872 (Version 2)
Quarter: 2023Q2

REPORT INFORMATION
  Report Type: Spontaneous
  Country: ZA (occurrence: ZA)
  Receive Date: 20230605
  Receipt Date: 20230619
  Transmission Date: 20230722
  Serious: Yes (Other)
  Sender: FDA-Public Use
  Company Number: ZA-ABBOTT-2023A-1364629

PATIENT
  Age: 83 Year
  Sex: Male

DRUGS (3)
  1. CREON [Suspect]
     Active Substance: PANCRELIPASE AMYLASE\PANCRELIPASE LIPASE\PANCRELIPASE PROTEASE
     Indication: Pancreatitis
     Dosage: LONGER THAN 6 MONTHS
     Route: 048
  2. MACRODANTIN [Concomitant]
     Active Substance: NITROFURANTOIN
     Indication: Urinary tract infection
     Route: 048
  3. CITALOPRAM HYDROBROMIDE [Concomitant]
     Active Substance: CITALOPRAM HYDROBROMIDE
     Indication: Depression
     Route: 048

REACTIONS (1)
  - Neoplasm malignant [Unknown]
